FAERS Safety Report 9840305 (Version 1)
Quarter: 2014Q1

REPORT INFORMATION
  Report Type: Spontaneous
  Country: US (occurrence: US)
  Receive Date: 20140124
  Receipt Date: 20140124
  Transmission Date: 20141002
  Serious: No
  Sender: FDA-Public Use
  Company Number: US-JNJFOC-20140107946

PATIENT
  Sex: Female
  Weight: 97.52 kg

DRUGS (9)
  1. SANDOZ FENTANYL TRANSDERMAL SYSTEM [Suspect]
     Indication: CHEST PAIN
     Route: 062
     Dates: start: 2013
  2. SANDOZ FENTANYL TRANSDERMAL SYSTEM [Suspect]
     Indication: ABDOMINAL PAIN UPPER
     Route: 062
     Dates: start: 2013
  3. UNSPECIED FENTANYL TRANSDERMAL SYSTEM [Suspect]
     Indication: PRODUCT USED FOR UNKNOWN INDICATION
     Route: 062
     Dates: start: 2011
  4. IMURAN [Concomitant]
     Indication: PROPHYLAXIS AGAINST TRANSPLANT REJECTION
     Route: 048
     Dates: start: 20120216
  5. LEVOTHYROXINE [Concomitant]
     Indication: HYPOTHYROIDISM
     Route: 048
     Dates: start: 2010
  6. WARFARIN [Concomitant]
     Indication: THROMBOSIS
     Route: 048
     Dates: start: 2010
  7. WARFARIN [Concomitant]
     Indication: THROMBOSIS
     Dosage: 6 DAYS IN A WEEK
     Route: 048
     Dates: start: 2010
  8. AMBIEN [Concomitant]
     Indication: SLEEP DISORDER
     Dosage: 6 DAYS IN A WEEK
     Route: 048
     Dates: start: 2012
  9. AMITRIPTYLINE [Concomitant]
     Indication: MIGRAINE
     Dosage: 6 DAYS IN A WEEK
     Route: 048
     Dates: start: 201308

REACTIONS (3)
  - Drug administered at inappropriate site [Not Recovered/Not Resolved]
  - Wrong technique in drug usage process [Not Recovered/Not Resolved]
  - Product quality issue [Unknown]
